FAERS Safety Report 8869284 (Version 1)
Quarter: 2012Q4

REPORT INFORMATION
  Report Type: Spontaneous
  Country: US (occurrence: None)
  Receive Date: 20121025
  Receipt Date: 20121025
  Transmission Date: 20130627
  Serious: Yes (Life-Threatening)
  Sender: FDA-Public Use
  Company Number: None

PATIENT
  Age: 59 Year
  Sex: Male
  Weight: 81.5 kg

DRUGS (1)
  1. PROTAMINE [Suspect]
     Dates: start: 20120816, end: 20120816

REACTIONS (6)
  - Anaphylactic reaction [None]
  - Hypotension [None]
  - Hypercapnia [None]
  - Right ventricular failure [None]
  - Bradycardia [None]
  - Cardiac arrest [None]
